FAERS Safety Report 14276719 (Version 2)
Quarter: 2018Q2

REPORT INFORMATION
  Report Type: Report from Study
  Country: US (occurrence: US)
  Receive Date: 20171212
  Receipt Date: 20180614
  Transmission Date: 20180711
  Serious: No
  Sender: FDA-Public Use
  Company Number: PHEH2017US039831

PATIENT
  Sex: Female

DRUGS (1)
  1. ENTRESTO [Suspect]
     Active Substance: SACUBITRIL\VALSARTAN
     Indication: CARDIOMYOPATHY
     Dosage: UNK
     Route: 048

REACTIONS (6)
  - Oxygen saturation decreased [Unknown]
  - Rash [Unknown]
  - Tachycardia [Unknown]
  - Nausea [Unknown]
  - Product use in unapproved indication [Unknown]
  - Eye swelling [Unknown]
